FAERS Safety Report 9230253 (Version 1)
Quarter: 2013Q2

REPORT INFORMATION
  Report Type: Spontaneous
  Country: US (occurrence: None)
  Receive Date: 20130411
  Receipt Date: 20130411
  Transmission Date: 20140414
  Serious: Yes (Hospitalization, Other)
  Sender: FDA-Public Use
  Company Number: NSR_01112_2013

PATIENT
  Sex: Female

DRUGS (1)
  1. BACLOFEN [Suspect]
     Indication: PRODUCT USED FOR UNKNOWN INDICATION
     Dosage: DF ADMINISTERED THROUGH G-TUBE

REACTIONS (2)
  - Coma [None]
  - Road traffic accident [None]
